FAERS Safety Report 14248863 (Version 9)
Quarter: 2018Q2

REPORT INFORMATION
  Report Type: Spontaneous
  Country: BE (occurrence: BE)
  Receive Date: 20171204
  Receipt Date: 20180416
  Transmission Date: 20180711
  Serious: Yes (Death, Life-Threatening, Disabling, Congenital Anomaly, Other)
  Sender: FDA-Public Use
  Company Number: BE-PFIZER INC-2017514075

PATIENT
  Age: 1 Week
  Sex: Male
  Weight: .3 kg

DRUGS (18)
  1. NUCALA [Suspect]
     Active Substance: MEPOLIZUMAB
     Dosage: 100 MG, UNK
     Route: 064
     Dates: start: 20170112
  2. VENTOLIN [Suspect]
     Active Substance: ALBUTEROL SULFATE
     Dosage: 100 UG, UNK
     Route: 064
  3. SERETIDE [Suspect]
     Active Substance: FLUTICASONE PROPIONATE\SALMETEROL XINAFOATE
     Dosage: UNK
     Route: 064
  4. VILANTEROL TRIFENATATE [Suspect]
     Active Substance: VILANTEROL TRIFENATATE
     Dosage: 1 MG, QD
     Route: 064
  5. SIPRALEXA [Suspect]
     Active Substance: ESCITALOPRAM OXALATE
     Dosage: 10 MG, UNK
     Route: 064
  6. AVAMYS [Suspect]
     Active Substance: FLUTICASONE FUROATE
     Dosage: UNK, BID
     Route: 064
  7. THEOPHYLLINE [Suspect]
     Active Substance: THEOPHYLLINE ANHYDROUS
     Dosage: UNK
     Route: 065
  8. XYZALL [Suspect]
     Active Substance: LEVOCETIRIZINE DIHYDROCHLORIDE
     Dosage: 5 MG, QD
     Route: 064
  9. PANTOPRAZOLE [Suspect]
     Active Substance: PANTOPRAZOLE
     Dosage: UNK
     Route: 065
  10. FLIXOTIDE [Suspect]
     Active Substance: FLUTICASONE PROPIONATE
     Dosage: 250 UG, BID
     Route: 064
  11. CHOLECALCIFEROL [Suspect]
     Active Substance: CHOLECALCIFEROL
     Dosage: 25 KIU, UNK
     Route: 065
  12. FLUTICASONE FUROATE [Suspect]
     Active Substance: FLUTICASONE FUROATE
     Dosage: UNK UNK, 1X/DAY
     Route: 064
  13. NUCALA [Suspect]
     Active Substance: MEPOLIZUMAB
     Dosage: 100 MG, UNK
     Route: 064
  14. RELVAR ELLIPTA [Suspect]
     Active Substance: FLUTICASONE FUROATE\VILANTEROL TRIFENATATE
     Dosage: UNK UNK, QD
     Route: 064
  15. PANTOMED (PANTOPRAZOLE) [Suspect]
     Active Substance: PANTOPRAZOLE
     Dosage: UNK
     Route: 064
  16. LEVOCETIRIZINE DIHYDROCHLORIDE. [Suspect]
     Active Substance: LEVOCETIRIZINE DIHYDROCHLORIDE
     Dosage: 5 MG, QD
     Route: 064
  17. D-CURE [Suspect]
     Active Substance: CHOLECALCIFEROL
     Dosage: 25 KIU, UNK
     Route: 064
  18. XANTHIUM (THEOPHYLLINE) [Suspect]
     Active Substance: THEOPHYLLINE
     Dosage: 200 MG, QD
     Route: 064

REACTIONS (3)
  - Foetal malformation [Fatal]
  - Exposure during pregnancy [Fatal]
  - Trisomy 18 [Fatal]

NARRATIVE: CASE EVENT DATE: 20170808
